FAERS Safety Report 7967827-0 (Version None)
Quarter: 2011Q4

REPORT INFORMATION
  Report Type: 
  Country: None (occurrence: None)
  Receive Date: 20111209
  Receipt Date: 20111205
  Transmission Date: 20120403
  Serious: Yes (Other)
  Sender: FDA-Public Use
  Company Number: US-AMGEN-USACT2011064810

PATIENT
  Age: 68 Year
  Sex: Male

DRUGS (2)
  1. PEGFILGRASTIM [Suspect]
  2. FLUDARABINE PHOSPHATE [Concomitant]

REACTIONS (1)
  - MYELODYSPLASTIC SYNDROME [None]
